FAERS Safety Report 9743880 (Version 1)
Quarter: 2013Q4

REPORT INFORMATION
  Report Type: Spontaneous
  Country: US (occurrence: US)
  Receive Date: 20131210
  Receipt Date: 20131210
  Transmission Date: 20140711
  Serious: No
  Sender: FDA-Public Use
  Company Number: US-BIOGENIDEC-2013BI097081

PATIENT
  Age: 56 Year
  Sex: Female

DRUGS (1)
  1. TECFIDERA [Suspect]
     Indication: MULTIPLE SCLEROSIS
     Route: 048
     Dates: start: 20130918, end: 20130928

REACTIONS (6)
  - Chills [Unknown]
  - Pain [Unknown]
  - Fall [Recovered/Resolved]
  - Ankle fracture [Unknown]
  - Vomiting [Unknown]
  - Diarrhoea [Unknown]
